FAERS Safety Report 9087093 (Version 1)
Quarter: 2013Q1

REPORT INFORMATION
  Report Type: Report from Study
  Country: US (occurrence: US)
  Receive Date: 20130130
  Receipt Date: 20130130
  Transmission Date: 20140127
  Serious: No
  Sender: FDA-Public Use
  Company Number: US-ABBOTT-12P-163-0955726-00

PATIENT
  Age: 52 Year
  Sex: Female

DRUGS (14)
  1. HUMIRA 40 MG/0.8 ML PEN [Suspect]
     Indication: CROHN^S DISEASE
     Dates: start: 20120606
  2. ASACOL [Concomitant]
     Indication: PRODUCT USED FOR UNKNOWN INDICATION
  3. OMEPRAZOLE [Concomitant]
     Indication: GASTROOESOPHAGEAL REFLUX DISEASE
  4. LORATADINE [Concomitant]
     Indication: SINUS DISORDER
  5. FLUOXETINE [Concomitant]
     Indication: DEPRESSION
  6. CLONAPIN [Concomitant]
     Indication: PANIC ATTACK
  7. SEROQUEL [Concomitant]
     Indication: DEPRESSION
     Dosage: PLUS 3 TABLETS AT BED TIME.
  8. SEROQUEL [Concomitant]
     Indication: INSOMNIA
     Dosage: AT BEDTIME
  9. SYMBICORT [Concomitant]
     Indication: BRONCHITIS
  10. BECONASE [Concomitant]
     Indication: SINUS DISORDER
  11. GABAPENTIN [Concomitant]
     Indication: NEURALGIA
  12. VIT B 12 [Concomitant]
     Indication: PRODUCT USED FOR UNKNOWN INDICATION
  13. VIT D [Concomitant]
     Indication: PRODUCT USED FOR UNKNOWN INDICATION
  14. PERCOCET [Concomitant]
     Indication: PAIN IN EXTREMITY

REACTIONS (3)
  - Pain in extremity [Recovered/Resolved]
  - Local swelling [Recovered/Resolved]
  - Local swelling [Not Recovered/Not Resolved]
